FAERS Safety Report 17739977 (Version 1)
Quarter: 2020Q2

REPORT INFORMATION
  Report Type: Spontaneous
  Country: US (occurrence: US)
  Receive Date: 20200502
  Receipt Date: 20200502
  Transmission Date: 20200714
  Serious: Yes (Other)
  Sender: FDA-Public Use
  Company Number: None

PATIENT
  Age: 25 Year
  Sex: Male
  Weight: 69.75 kg

DRUGS (3)
  1. CEPHALEXIN. [Concomitant]
     Active Substance: CEPHALEXIN
  2. AZITHROMYCIN DIHYDRATE 500MG TABLETS [Suspect]
     Active Substance: AZITHROMYCIN DIHYDRATE
     Indication: STREPTOCOCCAL INFECTION
     Dosage: ?          QUANTITY:1 TABLET(S);?
     Route: 048
     Dates: start: 20200428, end: 20200430
  3. LORATADINE. [Concomitant]
     Active Substance: LORATADINE

REACTIONS (9)
  - Chest pain [None]
  - Paranoia [None]
  - Agoraphobia [None]
  - Nausea [None]
  - Depression [None]
  - Decreased appetite [None]
  - Panic attack [None]
  - Dyspnoea [None]
  - Anxiety [None]

NARRATIVE: CASE EVENT DATE: 20200428
